FAERS Safety Report 17147025 (Version 1)
Quarter: 2019Q4

REPORT INFORMATION
  Report Type: Spontaneous
  Country: FR (occurrence: FR)
  Receive Date: 20191212
  Receipt Date: 20191212
  Transmission Date: 20200122
  Serious: Yes (Hospitalization)
  Sender: FDA-Public Use
  Company Number: FR-ZYDUS-021821

PATIENT
  Age: 64 Year
  Sex: Female
  Weight: 87 kg

DRUGS (9)
  1. DIFFU K [Concomitant]
     Active Substance: POTASSIUM CHLORIDE
     Indication: HYPOKALAEMIA
     Dosage: VARIABLE
     Route: 048
  2. PANTOPRAZOLE [Concomitant]
     Active Substance: PANTOPRAZOLE
     Indication: OESOPHAGITIS
     Route: 048
  3. PYRIDOXINE HYDROCHLORIDE/THIAMINE HYDROCHLORIDE [Concomitant]
     Active Substance: PYRIDOXINE HYDROCHLORIDE\THIAMINE HYDROCHLORIDE
     Indication: ASTHENIA
     Dosage: VARIABLE
     Route: 048
     Dates: start: 20171020
  4. CALCIUM CARBONATE/COLECALCIFEROL [Concomitant]
     Active Substance: CALCIUM CARBONATE\CHOLECALCIFEROL
     Indication: CALCIUM METABOLISM DISORDER
     Route: 048
     Dates: start: 20171020
  5. VENLAFAXINE/VENLAFAXINE HYDROCHLORIDE [Suspect]
     Active Substance: VENLAFAXINE HYDROCHLORIDE
     Indication: DEPRESSION
     Route: 048
     Dates: start: 20171009, end: 20171110
  6. LEVOTHYROXINE. [Concomitant]
     Active Substance: LEVOTHYROXINE
     Indication: HYPOTHYROIDISM
     Route: 048
  7. IOPAMIDOL [Suspect]
     Active Substance: IOPAMIDOL
     Indication: COMPUTERISED TOMOGRAM
     Dosage: IN TOTAL
     Route: 042
     Dates: start: 20171103, end: 20171103
  8. FOLIC ACID. [Suspect]
     Active Substance: FOLIC ACID
     Indication: MALNUTRITION
     Route: 048
     Dates: start: 20171101, end: 20171110
  9. CALCIUM PHOSPHATE MONOBASIC/MAGNESIUM GLYCEROPHOSPHATE/PHOSPHORIC ACID/SODIUM PHOSPHATE DIBASIC [Concomitant]
     Active Substance: CALCIUM PHOSPHATE, MONOBASIC, ANHYDROUS\MAGNESIUM GLYCEROPHOSPHATE\PHOSPHORIC ACID\SODIUM PHOSPHATE, DIBASIC
     Indication: HYPOPHOSPHATAEMIA
     Dosage: VARIABLE
     Route: 048
     Dates: start: 20171103

REACTIONS (2)
  - Pruritus [Recovered/Resolved]
  - Rash [Recovered/Resolved]

NARRATIVE: CASE EVENT DATE: 20171104
